FAERS Safety Report 22244589 (Version 1)
Quarter: 2023Q2

REPORT INFORMATION
  Report Type: Spontaneous
  Country: US (occurrence: None)
  Receive Date: 20230422
  Receipt Date: 20230422
  Transmission Date: 20230722
  Serious: Yes (Other)
  Sender: FDA-Public Use
  Company Number: None

PATIENT
  Age: 39 Year
  Sex: Female
  Weight: 85.5 kg

DRUGS (2)
  1. LABETALOL [Suspect]
     Active Substance: LABETALOL\LABETALOL HYDROCHLORIDE
  2. MIRENA [Suspect]
     Active Substance: LEVONORGESTREL

REACTIONS (15)
  - Complication associated with device [None]
  - Anxiety [None]
  - Depression [None]
  - Withdrawal syndrome [None]
  - Palpitations [None]
  - Dyspnoea [None]
  - Chest discomfort [None]
  - Dizziness [None]
  - Tachycardia [None]
  - Middle insomnia [None]
  - Paraesthesia [None]
  - Paraesthesia [None]
  - Blood pressure increased [None]
  - Decreased appetite [None]
  - Blood pressure decreased [None]

NARRATIVE: CASE EVENT DATE: 20230201
